FAERS Safety Report 14008884 (Version 2)
Quarter: 2017Q3

REPORT INFORMATION
  Report Type: Spontaneous
  Country: JP (occurrence: JP)
  Receive Date: 20170925
  Receipt Date: 20170928
  Transmission Date: 20171128
  Serious: Yes (Death, Other)
  Sender: FDA-Public Use
  Company Number: JP-PFIZER INC-2017405485

PATIENT
  Age: 76 Year
  Sex: Female

DRUGS (3)
  1. METHOTREXATE SODIUM. [Suspect]
     Active Substance: METHOTREXATE SODIUM
     Dosage: UNK
  2. CELECOX [Suspect]
     Active Substance: CELECOXIB
     Dosage: UNK
  3. PREDNISOLONE. [Concomitant]
     Active Substance: PREDNISOLONE
     Dosage: UNK

REACTIONS (7)
  - Cellulitis [Unknown]
  - Oedema peripheral [Unknown]
  - Acute kidney injury [Unknown]
  - Altered state of consciousness [Unknown]
  - Megacolon [Unknown]
  - Skin ulcer [Unknown]
  - Death [Fatal]

NARRATIVE: CASE EVENT DATE: 20170306
